FAERS Safety Report 10626637 (Version 1)
Quarter: 2014Q4

REPORT INFORMATION
  Report Type: Spontaneous
  Country: FR (occurrence: FR)
  Receive Date: 20141204
  Receipt Date: 20141204
  Transmission Date: 20150529
  Serious: Yes (Hospitalization)
  Sender: FDA-Public Use
  Company Number: FR-ASTRAZENECA-2014SE93175

PATIENT
  Sex: Female

DRUGS (7)
  1. ABILIFY [Suspect]
     Active Substance: ARIPIPRAZOLE
     Route: 065
  2. SEROPLEX [Suspect]
     Active Substance: ESCITALOPRAM OXALATE
     Route: 065
  3. LOXEN [Concomitant]
     Active Substance: NICARDIPINE HYDROCHLORIDE
     Indication: HYPERTENSION
     Dates: start: 201402
  4. LOXAPAC [Concomitant]
     Active Substance: LOXAPINE SUCCINATE
     Indication: DYSPNOEA
  5. TENORETIC [Suspect]
     Active Substance: ATENOLOL\CHLORTHALIDONE
     Dosage: 50 MG/12.5 MG DAILY
     Route: 048
     Dates: end: 201402
  6. PARKINANE [Suspect]
     Active Substance: TRIHEXYPHENIDYL HYDROCHLORIDE
     Route: 065
  7. TERCIAN [Suspect]
     Active Substance: CYAMEMAZINE
     Route: 065
     Dates: start: 20140120, end: 20140225

REACTIONS (3)
  - Dyspnoea [Unknown]
  - Hypertension [Unknown]
  - Exposure during pregnancy [Unknown]
